FAERS Safety Report 15485050 (Version 1)
Quarter: 2018Q4

REPORT INFORMATION
  Report Type: Spontaneous
  Country: US (occurrence: US)
  Receive Date: 20181010
  Receipt Date: 20181010
  Transmission Date: 20190205
  Serious: No
  Sender: FDA-Public Use
  Company Number: US-ROCHE-2157715

PATIENT
  Sex: Male

DRUGS (1)
  1. ESBRIET [Suspect]
     Active Substance: PIRFENIDONE
     Indication: IDIOPATHIC PULMONARY FIBROSIS
     Dosage: 534MG/801/534MG ;AM/NOON/PM; ONGOING: YES
     Route: 048
     Dates: start: 20170830

REACTIONS (2)
  - Dizziness [Unknown]
  - Underdose [Unknown]
